FAERS Safety Report 11800665 (Version 1)
Quarter: 2015Q4

REPORT INFORMATION
  Report Type: Spontaneous
  Country: US (occurrence: US)
  Receive Date: 20151204
  Receipt Date: 20151204
  Transmission Date: 20160305
  Serious: Yes (Hospitalization, Other)
  Sender: FDA-Public Use
  Company Number: US-PAR PHARMACEUTICAL COMPANIES-2015SCPR014517

PATIENT

DRUGS (4)
  1. BROAD SPECTRUM ANTIBIOTICS [Concomitant]
     Indication: EXTRADURAL ABSCESS
  2. METRONIDAZOLE. [Suspect]
     Active Substance: METRONIDAZOLE
     Indication: OSTEOMYELITIS
     Dosage: UNK UNK, UNKNOWN
     Route: 065
  3. METRONIDAZOLE. [Suspect]
     Active Substance: METRONIDAZOLE
     Indication: EXTRADURAL ABSCESS
  4. BROAD SPECTRUM ANTIBIOTICS [Concomitant]
     Indication: OSTEOMYELITIS
     Dosage: UNK UNK, UNKNOWN
     Route: 065

REACTIONS (5)
  - Toxic encephalopathy [Recovering/Resolving]
  - Dysarthria [None]
  - Cerebellar syndrome [None]
  - Toxicity to various agents [Recovering/Resolving]
  - Nystagmus [None]
